FAERS Safety Report 19203350 (Version 2)
Quarter: 2021Q3

REPORT INFORMATION
  Report Type: Spontaneous
  Country: US (occurrence: US)
  Receive Date: 20210430
  Receipt Date: 20210707
  Transmission Date: 20211014
  Serious: No
  Sender: FDA-Public Use
  Company Number: US-BAUSCH-BL-2021-011924

PATIENT
  Sex: Male

DRUGS (1)
  1. VYZULTA [Suspect]
     Active Substance: LATANOPROSTENE BUNOD
     Indication: GLAUCOMA
     Dosage: ABOUT A YEAR AGO STARTED
     Route: 047

REACTIONS (3)
  - Scleral discolouration [Unknown]
  - Blepharal pigmentation [Unknown]
  - Lip discolouration [Unknown]

NARRATIVE: CASE EVENT DATE: 2021
